FAERS Safety Report 20720826 (Version 3)
Quarter: 2022Q2

REPORT INFORMATION
  Report Type: Report from Study
  Country: US (occurrence: US)
  Receive Date: 20220418
  Receipt Date: 20220602
  Transmission Date: 20220720
  Serious: No
  Sender: FDA-Public Use
  Company Number: US-GLAXOSMITHKLINE-US2022AMR064669

PATIENT

DRUGS (1)
  1. BELANTAMAB MAFODOTIN [Suspect]
     Active Substance: BELANTAMAB MAFODOTIN
     Indication: Product used for unknown indication
     Dosage: UNK
     Dates: start: 20220315

REACTIONS (10)
  - Keratopathy [Unknown]
  - Visual acuity reduced [Unknown]
  - Corneal oedema [Not Recovered/Not Resolved]
  - Corneal epithelial microcysts [Not Recovered/Not Resolved]
  - Night blindness [Not Recovered/Not Resolved]
  - Photophobia [Not Recovered/Not Resolved]
  - Dry eye [Not Recovered/Not Resolved]
  - Sensation of foreign body [Not Recovered/Not Resolved]
  - Keratitis [Recovering/Resolving]
  - Myopia [Unknown]

NARRATIVE: CASE EVENT DATE: 20220411
